FAERS Safety Report 9201689 (Version 1)
Quarter: 2013Q2

REPORT INFORMATION
  Report Type: Spontaneous
  Country: JP (occurrence: JP)
  Receive Date: 20130401
  Receipt Date: 20130401
  Transmission Date: 20140414
  Serious: Yes (Other)
  Sender: FDA-Public Use
  Company Number: JP-ASTRAZENECA-2013SE19874

PATIENT
  Age: 74 Year
  Sex: Female

DRUGS (1)
  1. FASLODEX [Suspect]
     Dosage: DOSE UNKNOWN.
     Route: 030

REACTIONS (3)
  - Metastases to bone [Unknown]
  - Pain in extremity [Unknown]
  - Hypoaesthesia [Unknown]
